FAERS Safety Report 10098870 (Version 1)
Quarter: 2014Q2

REPORT INFORMATION
  Report Type: Spontaneous
  Country: None (occurrence: US)
  Receive Date: 20140423
  Receipt Date: 20140423
  Transmission Date: 20141212
  Serious: No
  Sender: FDA-Public Use
  Company Number: US-NOVEN-14US008898

PATIENT
  Sex: Female

DRUGS (1)
  1. BRISDELLE [Suspect]
     Indication: HOT FLUSH
     Dosage: 7.5 MG, UNKNOWN
     Route: 048

REACTIONS (1)
  - Mania [Not Recovered/Not Resolved]
